FAERS Safety Report 7915229-5 (Version None)
Quarter: 2011Q4

REPORT INFORMATION
  Report Type: 
  Country: None (occurrence: None)
  Receive Date: 20111115
  Receipt Date: 20111102
  Transmission Date: 20120403
  Serious: Yes (Hospitalization, Other)
  Sender: FDA-Public Use
  Company Number: US-ELI_LILLY_AND_COMPANY-US201105002051

PATIENT
  Age: 53 Year
  Sex: Female

DRUGS (6)
  1. CARISOPRODOL [Concomitant]
     Indication: BACK PAIN
     Dosage: 350 MG, TID
     Route: 048
  2. LORAZEPAM [Concomitant]
     Dosage: 1 MG, QD
     Route: 048
  3. BISACODYL [Concomitant]
     Dosage: 10 MG, QD
     Route: 048
  4. MIRTAZAPINE [Concomitant]
     Dosage: 15 MG, UNK
     Route: 048
  5. LORAZEPAM [Concomitant]
     Dosage: 2.5 MG, QD
     Route: 048
  6. ZYPREXA [Suspect]
     Indication: PSYCHOTIC DISORDER
     Dosage: 7.5 MG, QD
     Route: 048
     Dates: start: 20100501, end: 20100601

REACTIONS (8)
  - DEPRESSION [None]
  - ANURIA [None]
  - HYPOPHAGIA [None]
  - CAMPTOCORMIA [None]
  - NEUROGENIC BLADDER [None]
  - ASTHENIA [None]
  - EXTRAPYRAMIDAL DISORDER [None]
  - HYPOAESTHESIA [None]
